FAERS Safety Report 12848100 (Version 1)
Quarter: 2016Q4

REPORT INFORMATION
  Report Type: Spontaneous
  Country: US (occurrence: US)
  Receive Date: 20161014
  Receipt Date: 20161014
  Transmission Date: 20170207
  Serious: No
  Sender: FDA-Public Use
  Company Number: US-JNJFOC-20160826322

PATIENT
  Age: 11 Month
  Sex: Female
  Weight: 10.89 kg

DRUGS (2)
  1. MOTRIN INFANTS [Suspect]
     Active Substance: IBUPROFEN
     Indication: EAR INFECTION
     Route: 048
     Dates: start: 20160829, end: 20160829
  2. MOTRIN INFANTS [Suspect]
     Active Substance: IBUPROFEN
     Indication: SINUSITIS
     Route: 048
     Dates: start: 20160829, end: 20160829

REACTIONS (2)
  - Intentional product use issue [Unknown]
  - Intentional product misuse [Unknown]
